FAERS Safety Report 17990652 (Version 2)
Quarter: 2020Q3

REPORT INFORMATION
  Report Type: Spontaneous
  Country: US (occurrence: US)
  Receive Date: 20200707
  Receipt Date: 20200729
  Transmission Date: 20201103
  Serious: No
  Sender: FDA-Public Use
  Company Number: US-BIOGEN-2020BI00894213

PATIENT
  Sex: Female

DRUGS (2)
  1. TECFIDERA [Suspect]
     Active Substance: DIMETHYL FUMARATE
     Indication: MULTIPLE SCLEROSIS
     Route: 065
     Dates: start: 20131008, end: 20140131
  2. TECFIDERA [Suspect]
     Active Substance: DIMETHYL FUMARATE
     Route: 065
     Dates: start: 20140604, end: 201910

REACTIONS (4)
  - Feeling of body temperature change [Not Recovered/Not Resolved]
  - Urinary incontinence [Unknown]
  - Migraine [Unknown]
  - Early satiety [Unknown]

NARRATIVE: CASE EVENT DATE: 2020
